FAERS Safety Report 8464934-3 (Version None)
Quarter: 2012Q2

REPORT INFORMATION
  Report Type: 
  Country: None (occurrence: None)
  Receive Date: 20120626
  Receipt Date: 20120615
  Transmission Date: 20120825
  Serious: Yes (Other)
  Sender: FDA-Public Use
  Company Number: JP-JNJFOC-20120610007

PATIENT
  Sex: Female

DRUGS (5)
  1. TOPIRAMATE [Suspect]
     Indication: EPILEPSY
     Route: 048
     Dates: start: 20090820, end: 20091104
  2. CARBAMAZEPINE [Concomitant]
     Route: 048
     Dates: start: 20100225
  3. CARBAMAZEPINE [Concomitant]
     Route: 048
     Dates: end: 20090701
  4. TOPIRAMATE [Suspect]
     Route: 048
     Dates: start: 20090702, end: 20090819
  5. CARBAMAZEPINE [Concomitant]
     Indication: EPILEPSY
     Route: 048
     Dates: start: 20090702, end: 20100224

REACTIONS (4)
  - DELUSION [None]
  - PARANOIA [None]
  - HALLUCINATION, AUDITORY [None]
  - MATERNAL EXPOSURE DURING PREGNANCY [None]
